FAERS Safety Report 11419432 (Version 1)
Quarter: 2015Q3

REPORT INFORMATION
  Report Type: Spontaneous
  Country: US (occurrence: None)
  Receive Date: 20150825
  Receipt Date: 20150825
  Transmission Date: 20151125
  Serious: Yes (Other)
  Sender: FDA-Public Use
  Company Number: None

PATIENT
  Age: 16 Day
  Sex: Female
  Weight: 104.33 kg

DRUGS (9)
  1. ESTROGEN CREAM [Concomitant]
  2. TESTOSTERONE CREAM [Concomitant]
  3. ALBUTEROL. [Concomitant]
     Active Substance: ALBUTEROL
  4. VALSARTAN WITH HCTZ [Concomitant]
  5. ATORVASTATINI [Concomitant]
  6. BIOTIN [Concomitant]
     Active Substance: BIOTIN
  7. HYQVIA [Suspect]
     Active Substance: HUMAN IMMUNOGLOBULIN G\HYALURONIDASE RECOMBINANT HUMAN
     Indication: IMMUNOGLOBULINS DECREASED
     Dosage: GIVEN INTO/UNDER THE SKIN
  8. VITAMIN D [Concomitant]
     Active Substance: CHOLECALCIFEROL
  9. SINGULAIR [Concomitant]
     Active Substance: MONTELUKAST SODIUM

REACTIONS (3)
  - Meningitis aseptic [None]
  - Nausea [None]
  - Photophobia [None]

NARRATIVE: CASE EVENT DATE: 20150717
